FAERS Safety Report 15238900 (Version 2)
Quarter: 2018Q3

REPORT INFORMATION
  Report Type: Spontaneous
  Country: US (occurrence: US)
  Receive Date: 20180803
  Receipt Date: 20180808
  Transmission Date: 20181010
  Serious: Yes (Hospitalization)
  Sender: FDA-Public Use
  Company Number: US-TEVA-2018-US-934718

PATIENT
  Age: 39 Year
  Sex: Female

DRUGS (2)
  1. SPRINTEC [Suspect]
     Active Substance: ETHINYL ESTRADIOL\NORGESTIMATE
     Indication: CONTRACEPTION
     Dosage: 0.250 MG/0.035 MG
     Route: 065
     Dates: start: 2012, end: 20170824
  2. SPRINTEC [Suspect]
     Active Substance: ETHINYL ESTRADIOL\NORGESTIMATE
     Indication: PAIN

REACTIONS (8)
  - Impaired driving ability [Unknown]
  - Dyspnoea [Unknown]
  - Dysstasia [Unknown]
  - Product use in unapproved indication [Unknown]
  - Impaired work ability [Unknown]
  - Pulmonary embolism [Unknown]
  - Mental disorder [Unknown]
  - Hallucination [Unknown]

NARRATIVE: CASE EVENT DATE: 20170824
